FAERS Safety Report 9895361 (Version 2)
Quarter: 2014Q1

REPORT INFORMATION
  Report Type: Spontaneous
  Country: US (occurrence: US)
  Receive Date: 20140213
  Receipt Date: 20140213
  Transmission Date: 20141002
  Serious: No
  Sender: FDA-Public Use
  Company Number: US-BRISTOL-MYERS SQUIBB COMPANY-19389543

PATIENT
  Age: 58 Year
  Sex: Female
  Weight: 105.67 kg

DRUGS (13)
  1. ABATACEPT SUBQ INJECTION 125MG/ML [Suspect]
     Indication: RHEUMATOID ARTHRITIS
     Route: 058
     Dates: start: 2013
  2. ARAVA [Concomitant]
  3. METOPROLOL [Concomitant]
  4. DIOVAN [Concomitant]
  5. OXYCODONE [Concomitant]
  6. DOXAZOSIN [Concomitant]
  7. PRILOSEC [Concomitant]
  8. LEVOTHYROXINE [Concomitant]
  9. SULFADIAZINE [Concomitant]
  10. OXYCONTIN [Concomitant]
  11. NORVASC [Concomitant]
  12. METANX [Concomitant]
  13. XANAX [Concomitant]

REACTIONS (2)
  - Incorrect dose administered [Unknown]
  - Product quality issue [Unknown]
